FAERS Safety Report 6016255-6 (Version None)
Quarter: 2008Q4

REPORT INFORMATION
  Report Type: 
  Country: None (occurrence: None)
  Receive Date: 20081222
  Receipt Date: 20081212
  Transmission Date: 20090506
  Serious: No
  Sender: FDA-Public Use
  Company Number: JP-ELI_LILLY_AND_COMPANY-JP200810001678

PATIENT
  Sex: Female

DRUGS (8)
  1. RALOXIFENE HYDROCHLORIDE [Suspect]
     Indication: OSTEOPOROSIS POSTMENOPAUSAL
     Dosage: 60 MG, DAILY (1/D)
     Route: 048
     Dates: start: 20050415, end: 20070427
  2. LOXONIN [Concomitant]
     Indication: ANALGESIA
     Dosage: 180 MG, DAILY (1/D)
     Route: 048
     Dates: start: 20050415, end: 20071130
  3. CALCITRIOL [Concomitant]
     Indication: OSTEOPOROSIS POSTMENOPAUSAL
     Dosage: 1 UG, DAILY (1/D)
     Route: 048
     Dates: start: 20060307, end: 20070429
  4. GLAKAY [Concomitant]
     Indication: OSTEOPOROSIS POSTMENOPAUSAL
     Dosage: 30 MG, DAILY (1/D)
     Route: 048
     Dates: start: 20060307, end: 20070427
  5. HICORT [Concomitant]
     Indication: PERIARTHRITIS
     Dosage: 4 MG, UNKNOWN
     Route: 014
     Dates: start: 20050415, end: 20071228
  6. LIDOCAINE [Concomitant]
     Indication: PERIARTHRITIS
     Dosage: 1 ML, UNKNOWN
     Route: 014
     Dates: start: 20050415, end: 20071228
  7. LIDOCAINE [Concomitant]
     Dosage: 2 ML, DAILY (1/D)
     Route: 014
     Dates: start: 20050415, end: 20070413
  8. HYALURONATE SODIUM [Concomitant]
     Indication: OSTEOARTHRITIS
     Dosage: 2 D/F, UNKNOWN
     Route: 014
     Dates: start: 20050415, end: 20070413

REACTIONS (1)
  - DEMENTIA [None]
